FAERS Safety Report 8217903-2 (Version None)
Quarter: 2012Q1

REPORT INFORMATION
  Report Type: 
  Country: None (occurrence: None)
  Receive Date: 20120319
  Receipt Date: 20120309
  Transmission Date: 20120608
  Serious: Yes (Other)
  Sender: FDA-Public Use
  Company Number: US-BAYER-2011-050659

PATIENT
  Age: 30 Year
  Sex: Female
  Weight: 118 kg

DRUGS (5)
  1. DROSPIRENONE AND ETHINYL ESTRADIOL [Suspect]
     Indication: ACNE
     Dosage: UNK
     Route: 048
     Dates: start: 20050101, end: 20080101
  2. YASMIN [Suspect]
     Indication: ACNE
     Dosage: UNK
     Route: 048
     Dates: start: 20050101, end: 20080101
  3. YASMIN [Suspect]
     Indication: PREMENSTRUAL SYNDROME
  4. DROSPIRENONE AND ETHINYL ESTRADIOL [Suspect]
     Indication: PREMENSTRUAL SYNDROME
  5. DIOVAN [Concomitant]
     Dosage: UNK

REACTIONS (10)
  - GALLBLADDER DISORDER [None]
  - SCAR [None]
  - DIARRHOEA [None]
  - DEPRESSION [None]
  - ABDOMINAL DISTENSION [None]
  - FLATULENCE [None]
  - DYSPEPSIA [None]
  - CHOLECYSTITIS [None]
  - CONSTIPATION [None]
  - ANXIETY [None]
